FAERS Safety Report 4693370-0 (Version None)
Quarter: 2005Q2

REPORT INFORMATION
  Report Type: 
  Country: None (occurrence: None)
  Receive Date: 20050617
  Receipt Date: 20050321
  Transmission Date: 20051028
  Serious: Yes (Hospitalization)
  Sender: FDA-Public Use
  Company Number: US-MERCK-0503USA03545

PATIENT
  Age: 70 Year
  Sex: Male
  Weight: 90 kg

DRUGS (6)
  1. VIOXX [Suspect]
     Indication: ARTHRITIS
     Route: 048
     Dates: end: 20040329
  2. ZOCOR [Concomitant]
     Indication: HYPERLIPIDAEMIA
     Route: 065
  3. CARDURA [Concomitant]
     Indication: PROSTATIC DISORDER
     Route: 065
  4. ASPIRIN [Concomitant]
     Route: 065
  5. GLUCOPHAGE [Concomitant]
     Indication: DIABETES MELLITUS
     Route: 065
  6. GLUCOPHAGE [Concomitant]
     Indication: DIABETES MELLITUS
     Route: 065

REACTIONS (25)
  - ABDOMINAL PAIN UPPER [None]
  - ANAEMIA [None]
  - ANGINA UNSTABLE [None]
  - AORTIC STENOSIS [None]
  - BACK PAIN [None]
  - BUTTOCK PAIN [None]
  - CARDIAC MURMUR [None]
  - CHEST PAIN [None]
  - COLONIC POLYP [None]
  - CORONARY ARTERY DISEASE [None]
  - DIASTOLIC DYSFUNCTION [None]
  - DIVERTICULUM [None]
  - DUODENITIS [None]
  - DYSPEPSIA [None]
  - DYSPNOEA [None]
  - ENCEPHALOPATHY [None]
  - ERUCTATION [None]
  - FLATULENCE [None]
  - GASTRITIS [None]
  - HYPERTENSION [None]
  - HYPOKINESIA [None]
  - INTESTINAL FUNCTIONAL DISORDER [None]
  - NAUSEA [None]
  - PERIPHERAL VASCULAR DISORDER [None]
  - VENTRICULAR HYPERTROPHY [None]
